FAERS Safety Report 14239076 (Version 1)
Quarter: 2017Q4

REPORT INFORMATION
  Report Type: Spontaneous
  Country: US (occurrence: US)
  Receive Date: 20171127
  Receipt Date: 20171127
  Transmission Date: 20180321
  Serious: No
  Sender: FDA-Public Use
  Company Number: None

PATIENT
  Sex: Male
  Weight: 78.75 kg

DRUGS (5)
  1. RISPERATOL [Concomitant]
  2. ASPIRIN. [Concomitant]
     Active Substance: ASPIRIN
  3. ARIPIPRAZOLE. [Suspect]
     Active Substance: ARIPIPRAZOLE
     Indication: BIPOLAR DISORDER
     Dosage: ?          QUANTITY:1 TABLET(S);?
     Route: 048
     Dates: start: 20171023, end: 20171117
  4. CAPTROPRIL [Concomitant]
  5. SIMVASTIN [Concomitant]
     Active Substance: SIMVASTATIN

REACTIONS (2)
  - Abnormal behaviour [None]
  - Gambling disorder [None]

NARRATIVE: CASE EVENT DATE: 20171023
